FAERS Safety Report 9897502 (Version 1)
Quarter: 2014Q1

REPORT INFORMATION
  Report Type: Report from Study
  Country: ES (occurrence: ES)
  Receive Date: 20140214
  Receipt Date: 20140214
  Transmission Date: 20141002
  Serious: Yes (Other)
  Sender: FDA-Public Use
  Company Number: ES-VERTEX PHARMACEUTICALS INC-2014-000772

PATIENT
  Sex: 0

DRUGS (3)
  1. TELAPREVIR [Suspect]
     Indication: CHRONIC HEPATITIS C
  2. RIBAVIRIN [Suspect]
     Indication: CHRONIC HEPATITIS C
     Route: 065
  3. PEGINTERFERON ALFA [Suspect]
     Indication: CHRONIC HEPATITIS C
     Route: 065

REACTIONS (8)
  - Adverse event [Unknown]
  - Infection [Unknown]
  - Neutropenia [Unknown]
  - Condition aggravated [Unknown]
  - Anaemia [Unknown]
  - Viral load increased [Unknown]
  - Rash [Unknown]
  - Thrombocytopenia [Unknown]
